FAERS Safety Report 12532137 (Version 2)
Quarter: 2016Q3

REPORT INFORMATION
  Report Type: Spontaneous
  Country: US (occurrence: US)
  Receive Date: 20160706
  Receipt Date: 20160727
  Transmission Date: 20161109
  Serious: Yes (Hospitalization, Other)
  Sender: FDA-Public Use
  Company Number: US-SAOL THERAPEUTICS-2016SAO00001

PATIENT
  Age: 66 Year
  Sex: Male
  Weight: 83.9 kg

DRUGS (13)
  1. LIORESAL [Suspect]
     Active Substance: BACLOFEN
     Dosage: 1200 ?G/ML, \DAY
     Dates: start: 201604
  2. ZANAFLEX [Suspect]
     Active Substance: TIZANIDINE HYDROCHLORIDE
     Indication: MUSCLE SPASTICITY
     Dosage: UNK
     Dates: end: 20160411
  3. PAIN MEDICATIONS (UNSPECIFIED) [Suspect]
     Active Substance: UNSPECIFIED INGREDIENT
  4. MESTINON [Concomitant]
     Active Substance: PYRIDOSTIGMINE BROMIDE
  5. LASIX [Concomitant]
     Active Substance: FUROSEMIDE
     Dosage: 20 MG, 2X/DAY
  6. LIORESAL [Suspect]
     Active Substance: BACLOFEN
     Indication: MUSCLE SPASTICITY
     Dosage: 1200 ?G, \DAY
     Dates: start: 20121218
  7. VALIUM [Concomitant]
     Active Substance: DIAZEPAM
     Indication: MUSCLE SPASTICITY
     Dosage: 5 MG, 3X/DAY
  8. LIORESAL [Suspect]
     Active Substance: BACLOFEN
     Dosage: 1675 UNK, UNK
     Dates: start: 2016, end: 2016
  9. GABAPENTIN. [Concomitant]
     Active Substance: GABAPENTIN
     Indication: PAIN
     Dosage: 600 MG, 3X/DAY
  10. DOXAZOSIN [Concomitant]
     Active Substance: DOXAZOSIN\DOXAZOSIN MESYLATE
     Dosage: 2 MG, 1X/DAY
  11. LIORESAL [Suspect]
     Active Substance: BACLOFEN
     Indication: STIFF PERSON SYNDROME
     Dosage: 1600 ?G/ML, \DAY
     Dates: start: 201604
  12. IBUPROFEN. [Suspect]
     Active Substance: IBUPROFEN
  13. LIORESAL [Suspect]
     Active Substance: BACLOFEN
     Dosage: 2000 ?G/ML, \DAY
     Dates: start: 201604

REACTIONS (14)
  - Hallucination [Recovered/Resolved]
  - Psychotic disorder [Recovering/Resolving]
  - Muscle spasms [Unknown]
  - Respiratory rate decreased [Recovering/Resolving]
  - Overdose [Unknown]
  - Arrhythmia [Unknown]
  - Heart rate decreased [Recovering/Resolving]
  - Hallucination, auditory [Recovered/Resolved]
  - Personality disorder [Recovered/Resolved]
  - Body temperature decreased [Recovering/Resolving]
  - Unresponsive to stimuli [Recovered/Resolved]
  - Pain [Recovering/Resolving]
  - Memory impairment [Recovering/Resolving]
  - Hypertension [Recovered/Resolved]

NARRATIVE: CASE EVENT DATE: 2016
